FAERS Safety Report 5716773-1 (Version None)
Quarter: 2008Q2

REPORT INFORMATION
  Report Type: 
  Country: None (occurrence: None)
  Receive Date: 20080424
  Receipt Date: 20070820
  Transmission Date: 20081010
  Serious: No
  Sender: FDA-Public Use
  Company Number: US-BAYER-200711962BWH

PATIENT
  Age: 63 Year
  Sex: Male

DRUGS (7)
  1. LEVITRA [Suspect]
     Indication: ERECTILE DYSFUNCTION
     Dosage: TOTAL DAILY DOSE: 20 MG  UNIT DOSE: 20 MG
     Route: 048
     Dates: start: 20070419
  2. LEVITRA [Suspect]
     Dosage: TOTAL DAILY DOSE: 40 MG  UNIT DOSE: 20 MG
     Route: 048
     Dates: start: 20070420
  3. LEVITRA [Suspect]
     Route: 048
     Dates: start: 20070101
  4. UNKNOWN MEDICATION FOR BLOOD PRESSURE [Concomitant]
  5. UNKNOWN MEDICATION FOR HIGH CHOLESTEROL [Concomitant]
  6. UNKNOWN MEDICATION FOR THYROID [Concomitant]
  7. PLAVIX [Concomitant]

REACTIONS (2)
  - DRUG INEFFECTIVE [None]
  - ERECTILE DYSFUNCTION [None]
